FAERS Safety Report 15571260 (Version 1)
Quarter: 2018Q4

REPORT INFORMATION
  Report Type: Spontaneous
  Country: US (occurrence: US)
  Receive Date: 20181026
  Receipt Date: 20181026
  Transmission Date: 20190205
  Serious: Yes (Hospitalization)
  Sender: FDA-Public Use
  Company Number: None

PATIENT
  Age: 42 Year
  Sex: Female
  Weight: 57.5 kg

DRUGS (10)
  1. PERTUZUMAB 840MG CL, 420 C2-6 [Concomitant]
     Route: 042
     Dates: start: 20171003, end: 20180116
  2. PERTUZUMAB 840MG CL, 420 C2-6 [Concomitant]
     Indication: BREAST CANCER
     Route: 042
     Dates: start: 20171003, end: 20180116
  3. CARBOPLATIN. [Concomitant]
     Active Substance: CARBOPLATIN
  4. TRASTUZUMAB 4MG/KG CL, 2MG/KG C2-6 [Concomitant]
     Route: 042
     Dates: start: 20171003, end: 20180130
  5. TRASTUZUMAB 4MG/KG CL, 2MG/KG C2-6 [Suspect]
     Active Substance: TRASTUZUMAB
     Indication: BREAST CANCER
     Route: 042
     Dates: start: 20171003, end: 20180130
  6. PERTUZUMAB. [Suspect]
     Active Substance: PERTUZUMAB
  7. CARBOPLAIN AUC 2 [Suspect]
     Active Substance: CARBOPLATIN
     Indication: BREAST CANCER
     Route: 042
     Dates: start: 20171003, end: 20180130
  8. PACLITAXEL. [Concomitant]
     Active Substance: PACLITAXEL
  9. PACLITAXEL 80 MG/M2 [Suspect]
     Active Substance: PACLITAXEL
     Indication: BREAST CANCER
     Route: 042
     Dates: start: 20171003, end: 20180130
  10. TRASTUZUMAB. [Concomitant]
     Active Substance: TRASTUZUMAB

REACTIONS (4)
  - Skin infection [None]
  - Breast abscess [None]
  - Anaemia [None]
  - Postoperative abscess [None]

NARRATIVE: CASE EVENT DATE: 20180327
